FAERS Safety Report 9365900 (Version 1)
Quarter: 2013Q2

REPORT INFORMATION
  Report Type: Report from Study
  Country: FR (occurrence: FR)
  Receive Date: 20130625
  Receipt Date: 20130625
  Transmission Date: 20140414
  Serious: Yes (Hospitalization, Disabling, Other)
  Sender: FDA-Public Use
  Company Number: PHHY2012FR011695

PATIENT
  Age: 64 Year
  Sex: Female
  Weight: 74 kg

DRUGS (6)
  1. ALISKIREN [Suspect]
     Dosage: 150 MG PER DAY
     Dates: start: 20101103, end: 20110222
  2. NISIS [Concomitant]
     Indication: DIABETIC NEPHROPATHY
     Dosage: 160 MG, UNK
     Route: 048
     Dates: start: 2009
  3. FUROSEMIDE [Concomitant]
     Indication: HYPERTENSION
     Dosage: 80 MG, UNK
     Route: 048
     Dates: start: 20090506
  4. CARDENSIEL [Concomitant]
     Indication: CARDIOMYOPATHY
     Dosage: 5 MG, DAILY
     Route: 048
     Dates: start: 20090213
  5. VALSARTAN [Concomitant]
     Indication: NEPHROPATHY
     Dosage: 80 MG, DAILY
     Dates: start: 20090213
  6. VALSARTAN [Concomitant]
     Dosage: 160 MG, DAILY
     Dates: start: 20091125

REACTIONS (3)
  - Blood creatinine increased [Not Recovered/Not Resolved]
  - Renal impairment [Not Recovered/Not Resolved]
  - Myocardial ischaemia [Unknown]
